FAERS Safety Report 6862062-1 (Version None)
Quarter: 2010Q3

REPORT INFORMATION
  Report Type: 
  Country: None (occurrence: None)
  Receive Date: 20100721
  Receipt Date: 20100709
  Transmission Date: 20110219
  Serious: Yes (Hospitalization)
  Sender: FDA-Public Use
  Company Number: AT-JNJFOC-20100703488

PATIENT
  Age: 55 Year
  Sex: Male

DRUGS (7)
  1. REMICADE [Suspect]
     Indication: CROHN'S DISEASE
     Route: 042
  2. QUANTALAN [Concomitant]
     Dosage: AS NEEDED
  3. AGIOCUR [Concomitant]
  4. FERROGRADUMET [Concomitant]
     Dosage: AS NEEDED
  5. VITAMIN TAB [Concomitant]
     Dosage: AS NEEDED
  6. CALCIUM AND VITAMIN D [Concomitant]
     Indication: OSTEOPOROSIS
  7. BON VIVA (IBANDRONATE) [Concomitant]
     Indication: OSTEOPOROSIS
     Route: 042

REACTIONS (4)
  - CROHN'S DISEASE [None]
  - HYPOTENSION [None]
  - SEPSIS [None]
  - SYSTEMIC INFLAMMATORY RESPONSE SYNDROME [None]
